FAERS Safety Report 25104682 (Version 2)
Quarter: 2025Q2

REPORT INFORMATION
  Report Type: Spontaneous
  Country: CA (occurrence: CA)
  Receive Date: 20250321
  Receipt Date: 20250604
  Transmission Date: 20250716
  Serious: Yes (Other)
  Sender: SANOFI AVENTIS
  Company Number: CA-SA-2025SA081061

PATIENT
  Age: 53 Year
  Sex: Female
  Weight: 173 kg

DRUGS (22)
  1. INSULIN ASPART [Suspect]
     Active Substance: INSULIN ASPART
     Indication: Type 2 diabetes mellitus
     Dosage: 80 U, TID
     Route: 058
     Dates: start: 20230820, end: 20230827
  2. INSULIN ASPART [Suspect]
     Active Substance: INSULIN ASPART
     Indication: Steroid diabetes
  3. CALCIUM [Concomitant]
     Active Substance: CALCIUM
  4. EDECRIN [Concomitant]
     Active Substance: ETHACRYNIC ACID
  5. LANTUS [Concomitant]
     Active Substance: INSULIN GLARGINE
  6. MAGNESIUM [Concomitant]
     Active Substance: MAGNESIUM
  7. METOLAZONE [Concomitant]
     Active Substance: METOLAZONE
  8. OMNARIS [Concomitant]
     Active Substance: CICLESONIDE
  9. PANTOPRAZOLE [Concomitant]
     Active Substance: PANTOPRAZOLE
  10. POTASSIUM [Concomitant]
     Active Substance: POTASSIUM
  11. PREDNISONE [Concomitant]
     Active Substance: PREDNISONE
     Dosage: 25 MG, QD
  12. QUETIAPINE [Concomitant]
     Active Substance: QUETIAPINE
     Dosage: 75 MG, QHS
  13. ROSUVASTATIN [Concomitant]
     Active Substance: ROSUVASTATIN
  14. SENOKOT [Concomitant]
     Active Substance: SENNOSIDES
  15. SITAGLIPTIN [Concomitant]
     Active Substance: SITAGLIPTIN
  16. SYMBICORT [Concomitant]
     Active Substance: BUDESONIDE\FORMOTEROL FUMARATE DIHYDRATE
     Route: 055
  17. TEZSPIRE [Concomitant]
     Active Substance: TEZEPELUMAB-EKKO
  18. VENTOLIN [Concomitant]
     Active Substance: ALBUTEROL SULFATE
  19. VITAMIN B1 [Concomitant]
     Active Substance: THIAMINE HYDROCHLORIDE
  20. VITAMIN B12 [Concomitant]
     Active Substance: CYANOCOBALAMIN
  21. CHOLECALCIFEROL [Concomitant]
     Active Substance: CHOLECALCIFEROL
  22. VITAMIN K [Concomitant]
     Active Substance: PHYTONADIONE

REACTIONS (2)
  - Tremor [Recovered/Resolved]
  - Product substitution issue [Unknown]

NARRATIVE: CASE EVENT DATE: 20230820
